FAERS Safety Report 9125075 (Version 1)
Quarter: 2013Q1

REPORT INFORMATION
  Report Type: Spontaneous
  Country: US (occurrence: US)
  Receive Date: 20130227
  Receipt Date: 20130227
  Transmission Date: 20140127
  Serious: No
  Sender: FDA-Public Use
  Company Number: US-MYLANLABS-2012S1026173

PATIENT
  Age: 35 Year
  Sex: Male

DRUGS (4)
  1. BACLOFEN TABLETS USP [Suspect]
     Indication: ARACHNOIDITIS
     Route: 048
     Dates: start: 2007, end: 20121214
  2. PERCOCET [Concomitant]
     Indication: PAIN
  3. CLONAZEPAM [Concomitant]
     Indication: ANXIETY
     Route: 048
  4. GABAPENTIN [Concomitant]

REACTIONS (1)
  - Drug withdrawal syndrome [Not Recovered/Not Resolved]
